FAERS Safety Report 26010867 (Version 1)
Quarter: 2025Q4

REPORT INFORMATION
  Report Type: Report from Study
  Country: CA (occurrence: CA)
  Receive Date: 20251107
  Receipt Date: 20251107
  Transmission Date: 20260117
  Serious: Yes (Hospitalization)
  Sender: AMGEN
  Company Number: CA-AMGEN-CANSL2025209569

PATIENT
  Age: 68 Year
  Sex: Male

DRUGS (3)
  1. AVSOLA [Suspect]
     Active Substance: INFLIXIMAB-AXXQ
     Indication: Psoriatic arthropathy
     Dosage: 500 MILLIGRAM AT WEEK 0
     Route: 065
     Dates: start: 20251008
  2. AVSOLA [Suspect]
     Active Substance: INFLIXIMAB-AXXQ
     Dosage: 500 MILLIGRAM, Q2WK AT WEEK 2
     Route: 065
  3. AVSOLA [Suspect]
     Active Substance: INFLIXIMAB-AXXQ
     Dosage: 500 MILLIGRAM, Q6WK
     Route: 065
     Dates: end: 20251022

REACTIONS (8)
  - Hypersensitivity [Unknown]
  - Musculoskeletal stiffness [Unknown]
  - Infusion site hypoaesthesia [Unknown]
  - Dyspnoea [Unknown]
  - Influenza [Not Recovered/Not Resolved]
  - Nervousness [Unknown]
  - Infusion site urticaria [Unknown]
  - Pain in extremity [Unknown]

NARRATIVE: CASE EVENT DATE: 20250101
